FAERS Safety Report 16063500 (Version 1)
Quarter: 2019Q1

REPORT INFORMATION
  Report Type: Report from Study
  Country: None (occurrence: US)
  Receive Date: 20190312
  Receipt Date: 20190312
  Transmission Date: 20190418
  Serious: Yes (Other)
  Sender: FDA-Public Use
  Company Number: US-ABBVIE-19S-163-2696032-00

PATIENT
  Age: 29 Year
  Sex: Male

DRUGS (1)
  1. DEPAKOTE ER [Suspect]
     Active Substance: DIVALPROEX SODIUM
     Indication: PRODUCT USED FOR UNKNOWN INDICATION
     Route: 065

REACTIONS (4)
  - Gait inability [Recovered/Resolved]
  - Accident [Unknown]
  - Surgery [Unknown]
  - Injury [Unknown]

NARRATIVE: CASE EVENT DATE: 201802
